FAERS Safety Report 25191106 (Version 1)
Quarter: 2025Q2

REPORT INFORMATION
  Report Type: Spontaneous
  Country: US (occurrence: US)
  Receive Date: 20250411
  Receipt Date: 20250411
  Transmission Date: 20250716
  Serious: Yes (Death, Other)
  Sender: AMGEN
  Company Number: US-AMGEN-USASP2025067840

PATIENT

DRUGS (2)
  1. PREDNISONE [Suspect]
     Active Substance: PREDNISONE
     Indication: Duchenne muscular dystrophy
     Route: 065
  2. DEFLAZACORT [Concomitant]
     Active Substance: DEFLAZACORT
     Route: 065

REACTIONS (34)
  - Death [Fatal]
  - Spinal operation [Unknown]
  - Tracheostomy [Unknown]
  - Gastrostomy [Unknown]
  - Pneumonia [Unknown]
  - Cardiomyopathy [Unknown]
  - Seizure [Unknown]
  - Muscle hypertrophy [Unknown]
  - Hypoventilation [Unknown]
  - Diabetes mellitus [Unknown]
  - Autism spectrum disorder [Unknown]
  - Cardiac failure [Unknown]
  - Cognitive disorder [Unknown]
  - Constipation [Unknown]
  - Anxiety [Unknown]
  - Speech disorder developmental [Unknown]
  - Delayed puberty [Unknown]
  - Attention deficit hyperactivity disorder [Unknown]
  - Depression [Unknown]
  - Fracture [Unknown]
  - Dysphagia [Unknown]
  - Hypertension [Unknown]
  - Urinary incontinence [Unknown]
  - Motor developmental delay [Unknown]
  - Muscular weakness [Unknown]
  - Hypotonia [Unknown]
  - Nausea [Unknown]
  - Obesity [Unknown]
  - Osteopenia [Unknown]
  - Scoliosis [Unknown]
  - Sleep disorder [Unknown]
  - Gait disturbance [Unknown]
  - Muscle contracture [Unknown]
  - Off label use [Unknown]
